FAERS Safety Report 16392442 (Version 1)
Quarter: 2019Q2

REPORT INFORMATION
  Report Type: Spontaneous
  Country: US (occurrence: US)
  Receive Date: 20190605
  Receipt Date: 20190605
  Transmission Date: 20190711
  Serious: No
  Sender: FDA-Public Use
  Company Number: US-ROCHE-2204131

PATIENT
  Age: 52 Year
  Sex: Female

DRUGS (4)
  1. SOLU-MEDROL [Concomitant]
     Active Substance: METHYLPREDNISOLONE SODIUM SUCCINATE
     Route: 065
     Dates: start: 20180430
  2. ATIVAN [Concomitant]
     Active Substance: LORAZEPAM
     Indication: HEART RATE INCREASED
     Dosage: DOSE: HALF A MILIGRAM
     Route: 065
     Dates: start: 20180430
  3. OCREVUS [Suspect]
     Active Substance: OCRELIZUMAB
     Indication: RELAPSING MULTIPLE SCLEROSIS
     Dosage: DOSE: HALF DOSE
     Route: 042
     Dates: start: 20180430
  4. OCREVUS [Suspect]
     Active Substance: OCRELIZUMAB
     Dosage: DOSE: HALF DOSE
     Route: 042
     Dates: start: 20180514

REACTIONS (1)
  - Heart rate increased [Recovered/Resolved with Sequelae]

NARRATIVE: CASE EVENT DATE: 20180430
